FAERS Safety Report 4972329-X (Version None)
Quarter: 2006Q1

REPORT INFORMATION
  Report Type: 
  Country: None (occurrence: None)
  Receive Date: 20060215
  Receipt Date: 20051206
  Transmission Date: 20060701
  Serious: No
  Sender: FDA-Public Use
  Company Number: US200512001071

PATIENT
  Age: 37 Year
  Sex: Male

DRUGS (7)
  1. CYMBALTA [Suspect]
     Indication: DEPRESSION
     Dosage: 30 MG, DAILY (1/D); 60 MG DAILY
     Dates: start: 20051101
  2. CIALIS [Suspect]
     Indication: ERECTILE DYSFUNCTION
     Dosage: 10 MG
     Dates: start: 20051201
  3. PREDNISONE TAB [Concomitant]
  4. CORTISONE ACETATE [Concomitant]
  5. LEXAPRO [Concomitant]
  6. RESTORIL [Concomitant]
  7. XANAN [Concomitant]

REACTIONS (5)
  - EJACULATION FAILURE [None]
  - ERECTILE DYSFUNCTION [None]
  - FLUSHING [None]
  - HAEMATURIA [None]
  - HYPERHIDROSIS [None]
